FAERS Safety Report 7395622-2 (Version None)
Quarter: 2011Q2

REPORT INFORMATION
  Report Type: 
  Country: None (occurrence: None)
  Receive Date: 20110405
  Receipt Date: 20091030
  Transmission Date: 20111010
  Serious: Yes (Hospitalization)
  Sender: FDA-Public Use
  Company Number: PHHY2009DE67497

PATIENT
  Sex: Female

DRUGS (2)
  1. BETAFERON [Concomitant]
  2. EXTAVIA [Suspect]
     Dosage: UNK
     Route: 058
     Dates: start: 20090701

REACTIONS (6)
  - MULTIPLE SCLEROSIS RELAPSE [None]
  - HYPOKINESIA [None]
  - DYSURIA [None]
  - IMPAIRED SELF-CARE [None]
  - INFECTION [None]
  - MEDICAL INDUCTION OF COMA [None]
